FAERS Safety Report 15074276 (Version 1)
Quarter: 2018Q2

REPORT INFORMATION
  Report Type: Spontaneous
  Country: DE (occurrence: DE)
  Receive Date: 20180627
  Receipt Date: 20180627
  Transmission Date: 20180711
  Serious: Yes (Other)
  Sender: FDA-Public Use
  Company Number: DE-TEVA-823936GER

PATIENT
  Age: 31 Year
  Sex: Female

DRUGS (1)
  1. COPAXONE [Suspect]
     Active Substance: GLATIRAMER ACETATE
     Indication: MULTIPLE SCLEROSIS
     Dates: start: 20160504

REACTIONS (4)
  - Swelling face [Unknown]
  - Swollen tongue [Unknown]
  - Lip swelling [Unknown]
  - Angioedema [Unknown]

NARRATIVE: CASE EVENT DATE: 201710
